FAERS Safety Report 5768950-1 (Version None)
Quarter: 2008Q2

REPORT INFORMATION
  Report Type: 
  Country: None (occurrence: None)
  Receive Date: 20080612
  Receipt Date: 20080315
  Transmission Date: 20081010
  Serious: No
  Sender: FDA-Public Use
  Company Number: US-ABBOTT-08P-163-0442919-00

PATIENT
  Sex: Female
  Weight: 79.45 kg

DRUGS (9)
  1. HUMIRA [Suspect]
     Indication: RHEUMATOID ARTHRITIS
     Route: 058
     Dates: start: 20080228
  2. SPIRONOLACTONE [Concomitant]
     Indication: PITUITARY-DEPENDENT CUSHING'S SYNDROME
     Route: 048
  3. FUROSEMIDE [Concomitant]
     Indication: PITUITARY-DEPENDENT CUSHING'S SYNDROME
     Route: 048
  4. XALATAN [Concomitant]
     Indication: GLAUCOMA
     Route: 047
  5. LEVOTHYROXINE SODIUM [Concomitant]
     Indication: HYPOTHYROIDISM
     Route: 048
  6. ESOMEPRAZOLE MAGNESIUM [Concomitant]
     Indication: COUGH
     Route: 048
  7. TOLTERODINE TARTRATE [Concomitant]
     Indication: HYPERTONIC BLADDER
     Route: 048
  8. PREDNISONE TAB [Concomitant]
     Indication: RHEUMATOID ARTHRITIS
     Route: 048
  9. GABAPENTIN [Concomitant]
     Indication: NEUROPATHY PERIPHERAL
     Route: 048

REACTIONS (1)
  - ACCIDENTAL EXPOSURE [None]
